FAERS Safety Report 6684594-1 (Version None)
Quarter: 2010Q2

REPORT INFORMATION
  Report Type: 
  Country: None (occurrence: None)
  Receive Date: 20100416
  Receipt Date: 20100406
  Transmission Date: 20101027
  Serious: Yes (Disabling, Other)
  Sender: FDA-Public Use
  Company Number: IE-ABBOTT-08P-229-0467785-00

PATIENT
  Sex: Female
  Weight: 54 kg

DRUGS (2)
  1. HUMIRA [Suspect]
     Indication: CROHN'S DISEASE
     Route: 058
  2. HUMIRA [Suspect]
     Route: 058

REACTIONS (13)
  - ALOPECIA [None]
  - ARTHRALGIA [None]
  - ARTHRITIS [None]
  - DERMATITIS ALLERGIC [None]
  - ECZEMA [None]
  - FOOT DEFORMITY [None]
  - HAIR DISORDER [None]
  - JOINT SWELLING [None]
  - MOBILITY DECREASED [None]
  - MOTOR DYSFUNCTION [None]
  - MUSCULOSKELETAL PAIN [None]
  - OEDEMA PERIPHERAL [None]
  - RASH [None]
